APPROVED DRUG PRODUCT: DOXERCALCIFEROL
Active Ingredient: DOXERCALCIFEROL
Strength: 4MCG/2ML (2MCG/ML)
Dosage Form/Route: INJECTABLE;INJECTION
Application: A203929 | Product #001
Applicant: EPIC PHARMA LLC
Approved: May 7, 2015 | RLD: No | RS: No | Type: DISCN